FAERS Safety Report 14206901 (Version 3)
Quarter: 2018Q1

REPORT INFORMATION
  Report Type: Spontaneous
  Country: IT (occurrence: IT)
  Receive Date: 20171121
  Receipt Date: 20180301
  Transmission Date: 20180508
  Serious: Yes (Hospitalization)
  Sender: FDA-Public Use
  Company Number: IT-AXELLIA-001200

PATIENT
  Age: 55 Year
  Sex: Male

DRUGS (4)
  1. AMLODIPINE [Concomitant]
     Active Substance: AMLODIPINE BESYLATE
     Indication: PRODUCT USED FOR UNKNOWN INDICATION
     Dosage: UNK
  2. RIFAMPICIN [Suspect]
     Active Substance: RIFAMPIN
     Indication: OSTEOMYELITIS BACTERIAL
     Dosage: 300 MG EVERY 12 HOUR, 300 MG, 2X/DAY (BID)
  3. SULFAMETHOXAZOLE/TRIMETHOPRIM [Concomitant]
     Indication: OSTEOMYELITIS
     Dosage: UNK
  4. COLISTIN [Suspect]
     Active Substance: COLISTIN
     Indication: OSTEOMYELITIS BACTERIAL
     Dosage: STANDARD DOSE: 9 MILLION IU AS LEADING DOSE

REACTIONS (1)
  - Renal tubular disorder [Recovered/Resolved]
